FAERS Safety Report 6555757-0 (Version None)
Quarter: 2010Q1

REPORT INFORMATION
  Report Type: 
  Country: None (occurrence: None)
  Receive Date: 20100128
  Receipt Date: 20100119
  Transmission Date: 20100710
  Serious: Yes (Hospitalization)
  Sender: FDA-Public Use
  Company Number: FR-BAXTER-2010BH001250

PATIENT
  Age: 9 Year
  Sex: Male
  Weight: 23 kg

DRUGS (2)
  1. GAMMAGARD LIQUID [Suspect]
     Indication: HYPOGAMMAGLOBULINAEMIA
     Route: 042
     Dates: start: 20091229, end: 20091229
  2. POLARAMINE [Concomitant]
     Indication: PREMEDICATION

REACTIONS (5)
  - HEADACHE [None]
  - HYPERSENSITIVITY [None]
  - LIVEDO RETICULARIS [None]
  - MALAISE [None]
  - VOMITING [None]
